FAERS Safety Report 24910668 (Version 1)
Quarter: 2025Q1

REPORT INFORMATION
  Report Type: Spontaneous
  Country: JP (occurrence: JP)
  Receive Date: 20250131
  Receipt Date: 20250131
  Transmission Date: 20250409
  Serious: Yes (Other)
  Sender: PFIZER
  Company Number: JP-PFIZER INC-PV202500011759

PATIENT
  Age: 69 Year
  Sex: Female
  Weight: 48.9 kg

DRUGS (2)
  1. PACLITAXEL [Suspect]
     Active Substance: PACLITAXEL
     Indication: Breast cancer female
     Dates: start: 20240801, end: 20241017
  2. BEVACIZUMAB [Concomitant]
     Active Substance: BEVACIZUMAB
     Route: 042
     Dates: start: 20240801, end: 20241017

REACTIONS (2)
  - Macular oedema [Recovering/Resolving]
  - Maculopathy [Recovering/Resolving]

NARRATIVE: CASE EVENT DATE: 20241004
